FAERS Safety Report 10555088 (Version 2)
Quarter: 2014Q4

REPORT INFORMATION
  Report Type: Spontaneous
  Country: JP (occurrence: JP)
  Receive Date: 20141030
  Receipt Date: 20141031
  Transmission Date: 20150529
  Serious: Yes (Other)
  Sender: FDA-Public Use
  Company Number: JP-PFIZER INC-2014295514

PATIENT
  Sex: Female

DRUGS (3)
  1. GABAPEN [Suspect]
     Active Substance: GABAPENTIN
     Indication: FIBROMYALGIA
     Dosage: UNK
     Route: 048
  2. LYRICA [Suspect]
     Active Substance: PREGABALIN
     Indication: FIBROMYALGIA
     Dosage: 300 MG, DAILY
     Route: 048
     Dates: start: 20140510, end: 2014
  3. LYRICA [Suspect]
     Active Substance: PREGABALIN
     Dosage: 375 MG, DAILY
     Route: 048
     Dates: start: 2014, end: 2014

REACTIONS (2)
  - Weight increased [Unknown]
  - Hepatic steatosis [Unknown]

NARRATIVE: CASE EVENT DATE: 2014
